FAERS Safety Report 5212912-X (Version None)
Quarter: 2007Q1

REPORT INFORMATION
  Report Type: 
  Country: None (occurrence: None)
  Receive Date: 20070117
  Receipt Date: 20070109
  Transmission Date: 20070707
  Serious: Yes (Hospitalization)
  Sender: FDA-Public Use
  Company Number: SPV1--2007-00096

PATIENT
  Age: 16 Year
  Sex: Male
  Weight: 98.9 kg

DRUGS (4)
  1. ADDERALL XR(AMPHETAMINE ASPARTATE, AMPHETAMINE SULFATE, DEXTROAMPHETAM [Suspect]
     Indication: ATTENTION DEFICIT/HYPERACTIVITY DISORDER
     Dosage: 29 NGM 1X.DAY;QD,
     Dates: start: 20040101, end: 20070108
  2. INDERAL /00030002/(PROPRANOLOL HYDROCHLORIDE) [Concomitant]
  3. STRATTERA [Concomitant]
  4. GEODON [Concomitant]

REACTIONS (10)
  - DYSARTHRIA [None]
  - FACIAL PALSY [None]
  - FACIAL PARESIS [None]
  - FEELING ABNORMAL [None]
  - HYPERSENSITIVITY [None]
  - MENTAL DISORDER [None]
  - MENTAL STATUS CHANGES [None]
  - MYDRIASIS [None]
  - SINUS TACHYCARDIA [None]
  - SOMNOLENCE [None]
